FAERS Safety Report 21323458 (Version 2)
Quarter: 2023Q1

REPORT INFORMATION
  Report Type: Report from Study
  Country: BE (occurrence: BE)
  Receive Date: 20220912
  Receipt Date: 20230304
  Transmission Date: 20230418
  Serious: Yes (Hospitalization, Other)
  Sender: FDA-Public Use
  Company Number: BE-ABBVIE-22K-013-4489103-00

PATIENT
  Sex: Female

DRUGS (4)
  1. CARBIDOPA\LEVODOPA [Suspect]
     Active Substance: CARBIDOPA\LEVODOPA
     Indication: Parkinson^s disease
     Route: 050
     Dates: start: 20220517, end: 20220519
  2. CARBIDOPA\LEVODOPA [Suspect]
     Active Substance: CARBIDOPA\LEVODOPA
     Dosage: MD 12.0 ML; CD 5.0 ML/HR DURING 16 HOURS; ED 3.0 ML
     Route: 050
     Dates: start: 20220519, end: 20220525
  3. CARBIDOPA\LEVODOPA [Suspect]
     Active Substance: CARBIDOPA\LEVODOPA
     Dosage: MD 12.0 ML; CD 5.0 ML/HR DURING 16 HOURS; ED 3.0 ML
     Route: 050
     Dates: start: 20220525, end: 20220916
  4. CARBIDOPA\LEVODOPA [Suspect]
     Active Substance: CARBIDOPA\LEVODOPA
     Dosage: MD 12.0 ML; CD 6.0 ML/HR DURING 16 HOURS; ED 3.0 ML
     Dates: start: 20220916

REACTIONS (2)
  - Large intestine perforation [Recovered/Resolved]
  - Apallic syndrome [Unknown]

NARRATIVE: CASE EVENT DATE: 20220101
